FAERS Safety Report 12257185 (Version 1)
Quarter: 2016Q2

REPORT INFORMATION
  Report Type: Spontaneous
  Country: US (occurrence: US)
  Receive Date: 20160412
  Receipt Date: 20160412
  Transmission Date: 20160815
  Serious: No
  Sender: FDA-Public Use
  Company Number: US-SHIRE-US201604208

PATIENT
  Sex: Male

DRUGS (2)
  1. VYVANSE [Suspect]
     Active Substance: LISDEXAMFETAMINE DIMESYLATE
     Indication: ATTENTION DEFICIT/HYPERACTIVITY DISORDER
     Dosage: 50 MG, UNKNOWN
     Route: 048
  2. VYVANSE [Suspect]
     Active Substance: LISDEXAMFETAMINE DIMESYLATE
     Dosage: 100 MG, ONE DOSE (TWO 50 MG ONE TIME)
     Route: 048

REACTIONS (5)
  - Overdose [Unknown]
  - Incorrect dose administered [Unknown]
  - Drug effect decreased [Unknown]
  - Drug ineffective [Unknown]
  - Feeling abnormal [Unknown]
